FAERS Safety Report 8304503-9 (Version None)
Quarter: 2012Q2

REPORT INFORMATION
  Report Type: 
  Country: None (occurrence: None)
  Receive Date: 20120423
  Receipt Date: 20120412
  Transmission Date: 20120825
  Serious: Yes (Hospitalization)
  Sender: FDA-Public Use
  Company Number: US-GLAXOSMITHKLINE-A0789346A

PATIENT
  Age: 75 Year
  Sex: Female

DRUGS (8)
  1. AVANDAMET [Suspect]
     Indication: DIABETES MELLITUS
     Route: 048
     Dates: start: 20050818, end: 20060214
  2. FEMARA [Concomitant]
  3. LOTENSIN [Concomitant]
  4. ACIPHEX [Concomitant]
  5. ZOCOR [Concomitant]
  6. ALLOPURINOL [Concomitant]
  7. LIPITOR [Concomitant]
  8. AVANDIA [Suspect]
     Indication: DIABETES MELLITUS
     Dosage: 4MG PER DAY
     Route: 048
     Dates: start: 20040301, end: 20060101

REACTIONS (5)
  - ATRIAL THROMBOSIS [None]
  - SICK SINUS SYNDROME [None]
  - MYOCARDIAL INFARCTION [None]
  - CORONARY ARTERY DISEASE [None]
  - ATRIAL FLUTTER [None]
